FAERS Safety Report 4467124-4 (Version None)
Quarter: 2004Q4

REPORT INFORMATION
  Report Type: 
  Country: None (occurrence: None)
  Receive Date: 20041006
  Receipt Date: 20040922
  Transmission Date: 20050328
  Serious: Yes (Death)
  Sender: FDA-Public Use
  Company Number: SEWYE059423SEP04

PATIENT
  Sex: Female

DRUGS (6)
  1. ENBREL [Suspect]
     Indication: RHEUMATOID ARTHRITIS
     Route: 058
     Dates: start: 19990401
  2. ORUDIS [Suspect]
     Route: 048
  3. CYANOCOBALAMIN [Concomitant]
  4. PREDNISOLONE [Concomitant]
     Route: 048
  5. PROPULSID [Concomitant]
  6. DIDRONATE [Concomitant]

REACTIONS (5)
  - ASPIRATION [None]
  - CARDIOMEGALY [None]
  - ENTERITIS [None]
  - PULMONARY CONGESTION [None]
  - RENAL FAILURE [None]
